FAERS Safety Report 13367526 (Version 1)
Quarter: 2017Q1

REPORT INFORMATION
  Report Type: Spontaneous
  Country: US (occurrence: US)
  Receive Date: 20170323
  Receipt Date: 20170323
  Transmission Date: 20170429
  Serious: Yes (Disabling)
  Sender: FDA-Public Use
  Company Number: None

PATIENT
  Age: 19 Year
  Sex: Male
  Weight: 58.5 kg

DRUGS (5)
  1. JYM SUPPLEMENT SCIENCE MULTIVITAMIN [Concomitant]
  2. SEROQUEL [Concomitant]
     Active Substance: QUETIAPINE FUMARATE
  3. ADDERALL [Concomitant]
     Active Substance: AMPHETAMINE ASPARTATE\AMPHETAMINE SULFATE\DEXTROAMPHETAMINE SACCHARATE\DEXTROAMPHETAMINE SULFATE
  4. OPTIMUM NUTRITION WHEY PROTEIN [Concomitant]
  5. DEXTROAMPHET SACCHARAT, AMPHET ASPARTATE, DEXTROAMPHET SULFATE AND AMPHET SULFAT [Suspect]
     Active Substance: AMPHETAMINE ASPARTATE\AMPHETAMINE SULFATE\DEXTROAMPHETAMINE SACCHARATE\DEXTROAMPHETAMINE SULFATE
     Indication: ATTENTION DEFICIT/HYPERACTIVITY DISORDER
     Dosage: ?          QUANTITY:1 TABLET(S);?
     Route: 048
     Dates: start: 20170309, end: 20170320

REACTIONS (10)
  - Insomnia [None]
  - Hypoaesthesia [None]
  - Skin discolouration [None]
  - Anger [None]
  - Abdominal discomfort [None]
  - Irritability [None]
  - Product substitution issue [None]
  - Product quality issue [None]
  - Panic attack [None]
  - Mental disorder [None]

NARRATIVE: CASE EVENT DATE: 20170320
